FAERS Safety Report 26101866 (Version 3)
Quarter: 2025Q4

REPORT INFORMATION
  Report Type: Report from Study
  Country: BR (occurrence: BR)
  Receive Date: 20251128
  Receipt Date: 20251205
  Transmission Date: 20260117
  Serious: Yes (Other)
  Sender: NOVARTIS
  Company Number: BR-002147023-NVSC2025BR162889

PATIENT
  Age: 1 Year
  Sex: Female
  Weight: 7.88 kg

DRUGS (7)
  1. ZOLGENSMA [Suspect]
     Active Substance: ONASEMNOGENE ABEPARVOVEC-XIOI
     Indication: Spinal muscular atrophy
     Dosage: UNK, ONCE/SINGLE
     Route: 042
     Dates: start: 20250926, end: 20250926
  2. PREDNISOLONE [Concomitant]
     Active Substance: PREDNISOLONE
     Indication: Hepatic enzyme abnormal
     Dosage: 3 ML
     Route: 048
     Dates: start: 20250925
  3. PREDNISOLONE [Concomitant]
     Active Substance: PREDNISOLONE
     Dosage: 1.5 ML, QD
     Route: 048
     Dates: start: 20251114
  4. PREDNISOLONE [Concomitant]
     Active Substance: PREDNISOLONE
     Dosage: 1 MG/KG, QD
     Route: 065
  5. PREDNISOLONE [Concomitant]
     Active Substance: PREDNISOLONE
     Dosage: 0.7 MG/KG, QD (FROM 14 NOV)
     Route: 065
  6. IRON [Concomitant]
     Active Substance: IRON
     Indication: Product used for unknown indication
     Dosage: 9 DROPS
     Route: 048
  7. B12 [Concomitant]
     Indication: Product used for unknown indication
     Dosage: 1 DROP
     Route: 048

REACTIONS (27)
  - Vein rupture [Recovering/Resolving]
  - Vessel puncture site haematoma [Recovering/Resolving]
  - Pain in extremity [Recovering/Resolving]
  - Fatigue [Recovered/Resolved]
  - Dyspnoea [Recovered/Resolved]
  - Fatigue [Recovered/Resolved]
  - Dyspnoea [Recovered/Resolved]
  - Poor venous access [Recovered/Resolved]
  - Poor venous access [Recovered/Resolved]
  - Nervousness [Unknown]
  - Mass [Unknown]
  - Poor venous access [Recovered/Resolved]
  - Stress [Unknown]
  - Aspartate aminotransferase increased [Recovered/Resolved]
  - Alanine aminotransferase increased [Recovering/Resolving]
  - Poor venous access [Recovered/Resolved]
  - Haematoma [Unknown]
  - Neutrophil count decreased [Recovering/Resolving]
  - Mean platelet volume decreased [Unknown]
  - Blood urea decreased [Recovering/Resolving]
  - Blood creatinine decreased [Not Recovered/Not Resolved]
  - Blood albumin increased [Recovered/Resolved]
  - Eosinophil count decreased [Not Recovered/Not Resolved]
  - Monocyte count decreased [Recovered/Resolved]
  - Atypical lymphocytes increased [Unknown]
  - Platelet count decreased [Recovered/Resolved]
  - Blood bilirubin decreased [Recovered/Resolved]

NARRATIVE: CASE EVENT DATE: 20251003
